FAERS Safety Report 19436582 (Version 1)
Quarter: 2021Q2

REPORT INFORMATION
  Report Type: Report from Study
  Country: CN (occurrence: CN)
  Receive Date: 20210618
  Receipt Date: 20210618
  Transmission Date: 20210717
  Serious: Yes (Other)
  Sender: FDA-Public Use
  Company Number: CN-B.I. PHARMACEUTICALS,INC./RIDGEFIELD-2021-BI-107800

PATIENT
  Age: 70 Year
  Sex: Female

DRUGS (4)
  1. ICOTINIB [Concomitant]
     Active Substance: ICOTINIB
     Indication: EGFR GENE MUTATION
  2. GILOTRIF [Suspect]
     Active Substance: AFATINIB
     Indication: LUNG ADENOCARCINOMA
     Route: 065
  3. GILOTRIF [Suspect]
     Active Substance: AFATINIB
     Indication: EGFR GENE MUTATION
  4. ICOTINIB [Concomitant]
     Active Substance: ICOTINIB
     Indication: LUNG ADENOCARCINOMA

REACTIONS (2)
  - Small cell lung cancer [Unknown]
  - EGFR gene mutation [Unknown]
